FAERS Safety Report 8897698 (Version 1)
Quarter: 2012Q4

REPORT INFORMATION
  Report Type: 
  Country: US (occurrence: US)
  Receive Date: 20121108
  Receipt Date: 20121108
  Transmission Date: 20130627
  Serious: Yes (Other)
  Sender: FDA-Public Use
  Company Number: US-AMGEN-USASP2012030721

PATIENT
  Age: 48 Year
  Sex: Female

DRUGS (3)
  1. ENBREL [Suspect]
     Indication: PSORIASIS
     Dosage: 50 mg, qwk
     Dates: start: 201012, end: 201202
  2. ENBREL [Suspect]
     Dosage: 50 mg, qwk
     Dates: start: 20110121, end: 201112
  3. AUGMENTIN [Suspect]
     Dosage: UNK

REACTIONS (4)
  - Drug eruption [Unknown]
  - Hypersensitivity [Unknown]
  - Sinusitis [Recovered/Resolved]
  - Psoriasis [Not Recovered/Not Resolved]
